FAERS Safety Report 20549099 (Version 2)
Quarter: 2022Q1

REPORT INFORMATION
  Report Type: Spontaneous
  Country: NL (occurrence: NL)
  Receive Date: 20220303
  Receipt Date: 20220331
  Transmission Date: 20220423
  Serious: Yes (Other)
  Sender: FDA-Public Use
  Company Number: NL-BEH-2022142603

PATIENT
  Sex: Female
  Weight: 70 kg

DRUGS (1)
  1. BERINERT [Suspect]
     Active Substance: HUMAN C1-ESTERASE INHIBITOR
     Dosage: 2 X 4000 IU PER WEEK
     Route: 058
     Dates: start: 20220211, end: 20220212

REACTIONS (5)
  - Unevaluable event [Unknown]
  - Paraesthesia [Unknown]
  - No adverse event [Unknown]
  - Therapy cessation [Unknown]
  - Stress [Unknown]

NARRATIVE: CASE EVENT DATE: 20220211
